FAERS Safety Report 7783693-0 (Version None)
Quarter: 2011Q3

REPORT INFORMATION
  Report Type: 
  Country: None (occurrence: None)
  Receive Date: 20110926
  Receipt Date: 20110914
  Transmission Date: 20111222
  Serious: Yes (Other)
  Sender: FDA-Public Use
  Company Number: 2011SP043637

PATIENT
  Age: 65 Year
  Sex: Male

DRUGS (3)
  1. REBETOL [Suspect]
     Indication: HEPATITIS C
     Dosage: 600 MG; QD;
     Dates: start: 20110226
  2. VICTRELIS [Suspect]
     Indication: HEPATITIS C
     Dosage: 12 DF; QD;
     Dates: start: 20110326
  3. VIRAFERONPEG [Suspect]
     Indication: HEPATITIS C
     Dosage: 150 MCG; QW;
     Dates: start: 20110226

REACTIONS (8)
  - NODULE [None]
  - NEOPLASM MALIGNANT [None]
  - HEPATIC CIRRHOSIS [None]
  - GENERAL PHYSICAL HEALTH DETERIORATION [None]
  - LYMPHADENOPATHY [None]
  - WEIGHT DECREASED [None]
  - ABDOMINAL PAIN [None]
  - METASTASES TO LUNG [None]
